FAERS Safety Report 24270754 (Version 1)
Quarter: 2024Q3

REPORT INFORMATION
  Report Type: Spontaneous
  Country: IN (occurrence: IN)
  Receive Date: 20240831
  Receipt Date: 20240831
  Transmission Date: 20241017
  Serious: Yes (Other)
  Sender: Unknown Manufacturer
  Company Number: IN-KOANAAP-SML-IN-2024-00878

PATIENT
  Age: 77 Year
  Sex: Male

DRUGS (2)
  1. GEMCITABINE [Suspect]
     Active Substance: GEMCITABINE
     Indication: Renal cancer metastatic
  2. CARBOPLATIN [Suspect]
     Active Substance: CARBOPLATIN
     Indication: Renal cancer metastatic

REACTIONS (2)
  - Drug ineffective [Unknown]
  - Disease progression [Unknown]
